FAERS Safety Report 20343718 (Version 1)
Quarter: 2022Q1

REPORT INFORMATION
  Report Type: Spontaneous
  Country: ES (occurrence: ES)
  Receive Date: 20220118
  Receipt Date: 20220118
  Transmission Date: 20220423
  Serious: Yes (Death, Hospitalization, Other)
  Sender: FDA-Public Use
  Company Number: ES-LUPIN PHARMACEUTICALS INC.-2022-00346

PATIENT
  Age: 78 Year
  Sex: Male

DRUGS (8)
  1. METHYLPREDNISOLONE [Suspect]
     Active Substance: METHYLPREDNISOLONE
     Indication: Organising pneumonia
     Dosage: 250 MILLIGRAM
     Route: 042
  2. METHYLPREDNISOLONE [Suspect]
     Active Substance: METHYLPREDNISOLONE
     Dosage: 0.5 MILLIGRAM/KILOGRAM, QD
     Route: 042
  3. FLUCYTOSINE [Suspect]
     Active Substance: FLUCYTOSINE
     Indication: Disseminated cryptococcosis
     Dosage: 25 MILLIGRAM/KILOGRAM, QID
     Route: 065
  4. DEXAMETHASONE [Suspect]
     Active Substance: DEXAMETHASONE
     Indication: COVID-19
     Dosage: 6 MILLIGRAM
     Route: 065
  5. PREDNISONE [Suspect]
     Active Substance: PREDNISONE
     Indication: Organising pneumonia
     Dosage: UNK, 30-DAY PREDNISONE TAPERING REGIMEN
     Route: 065
  6. AMPHOTERICIN B [Suspect]
     Active Substance: AMPHOTERICIN B
     Indication: Disseminated cryptococcosis
     Dosage: 3 MILLIGRAM/KILOGRAM
     Route: 065
  7. MEROPENEM [Concomitant]
     Active Substance: MEROPENEM
     Indication: Pneumonia
     Dosage: 1 GRAM, BID
     Route: 065
  8. LINEZOLID [Concomitant]
     Active Substance: LINEZOLID
     Indication: Pneumonia
     Dosage: 600 MILLIGRAM, BID
     Route: 065

REACTIONS (6)
  - Respiratory tract infection [Fatal]
  - Disseminated cryptococcosis [Recovering/Resolving]
  - Pneumonia [Recovering/Resolving]
  - Staphylococcal infection [Recovering/Resolving]
  - Blood creatinine increased [Unknown]
  - Drug ineffective [Unknown]
